FAERS Safety Report 13918350 (Version 3)
Quarter: 2019Q3

REPORT INFORMATION
  Report Type: Spontaneous
  Country: IT (occurrence: IT)
  Receive Date: 20170829
  Receipt Date: 20190724
  Transmission Date: 20191004
  Serious: Yes (Hospitalization, Other)
  Sender: FDA-Public Use
  Company Number: IT-BAUSCH-BL-2017-025545

PATIENT
  Age: 70 Year
  Sex: Female

DRUGS (6)
  1. RIZATRIPTAN. [Interacting]
     Active Substance: RIZATRIPTAN
     Indication: MIGRAINE
     Dosage: AS NEEDED USE
     Route: 065
  2. VENLAFAXINE [Interacting]
     Active Substance: VENLAFAXINE HYDROCHLORIDE
     Indication: MAJOR DEPRESSION
  3. ACETAMINOPHEN AND CODEINE [Interacting]
     Active Substance: ACETAMINOPHEN\CODEINE PHOSPHATE
     Indication: MIGRAINE
     Dosage: CODEINE 30 MG; ACETAMINOPHEN 500 MG
     Route: 065
     Dates: start: 20151121, end: 201511
  4. VENLAFAXINE [Suspect]
     Active Substance: VENLAFAXINE HYDROCHLORIDE
     Indication: MIGRAINE
     Dosage: 150 MG IN MORNING AND 75 MG IN THE AFTERNOON
     Route: 065
     Dates: start: 20151121, end: 201511
  5. DIAZEPAM. [Suspect]
     Active Substance: DIAZEPAM
     Indication: PRODUCT USED FOR UNKNOWN INDICATION
     Dosage: RECOMMENDED DOSE
     Route: 048
  6. DIAZEPAM. [Suspect]
     Active Substance: DIAZEPAM
     Route: 048

REACTIONS (2)
  - Drug interaction [Recovered/Resolved]
  - Serotonin syndrome [Recovered/Resolved]

NARRATIVE: CASE EVENT DATE: 201511
